FAERS Safety Report 16525243 (Version 1)
Quarter: 2019Q3

REPORT INFORMATION
  Report Type: Report from Study
  Country: GB (occurrence: GB)
  Receive Date: 20190702
  Receipt Date: 20190702
  Transmission Date: 20191004
  Serious: Yes (Other)
  Sender: FDA-Public Use
  Company Number: GB-TAKEDA-2019TUS040845

PATIENT
  Sex: Female

DRUGS (1)
  1. IXAZOMIB [Suspect]
     Active Substance: IXAZOMIB
     Indication: PLASMA CELL MYELOMA
     Dosage: UNK
     Route: 048

REACTIONS (6)
  - Haemoglobin decreased [Unknown]
  - Diarrhoea [Unknown]
  - Decubitus ulcer [Unknown]
  - Pallor [Unknown]
  - Asthenia [Unknown]
  - Fatigue [Unknown]
